FAERS Safety Report 24417925 (Version 1)
Quarter: 2024Q4

REPORT INFORMATION
  Report Type: Spontaneous
  Country: US (occurrence: US)
  Receive Date: 20241009
  Receipt Date: 20241009
  Transmission Date: 20250115
  Serious: Yes (Life-Threatening, Hospitalization, Other)
  Sender: DR REDDYS
  Company Number: None

PATIENT
  Age: 61 Year
  Sex: Female

DRUGS (1)
  1. GEMCITABINE [Suspect]
     Active Substance: GEMCITABINE
     Indication: HER2 positive breast cancer

REACTIONS (5)
  - Acute respiratory failure [Recovered/Resolved]
  - Blood lactic acid increased [Recovered/Resolved]
  - Pneumonitis [Recovered/Resolved]
  - Acute respiratory distress syndrome [Recovered/Resolved]
  - Blood lactate dehydrogenase increased [Recovered/Resolved]
